FAERS Safety Report 12855350 (Version 1)
Quarter: 2016Q4

REPORT INFORMATION
  Report Type: Spontaneous
  Country: US (occurrence: US)
  Receive Date: 20161017
  Receipt Date: 20161017
  Transmission Date: 20170207
  Serious: Yes (Hospitalization)
  Sender: FDA-Public Use
  Company Number: PHHY2016US137878

PATIENT
  Age: 9 Year
  Sex: Male

DRUGS (1)
  1. GRISEOFULVIN. [Suspect]
     Active Substance: GRISEOFULVIN
     Indication: TINEA CAPITIS
     Route: 065

REACTIONS (1)
  - Drug reaction with eosinophilia and systemic symptoms [Recovering/Resolving]
